FAERS Safety Report 8980782 (Version 9)
Quarter: 2013Q2

REPORT INFORMATION
  Report Type: Spontaneous
  Country: US (occurrence: US)
  Receive Date: 20121221
  Receipt Date: 20130605
  Transmission Date: 20140414
  Serious: Yes (Death, Hospitalization, Other)
  Sender: FDA-Public Use
  Company Number: US-ACTELION-A-NJ2012-75825

PATIENT
  Age: 28 Year
  Sex: Male

DRUGS (1)
  1. VELETRI [Suspect]
     Indication: PULMONARY ARTERIAL HYPERTENSION
     Dosage: 12 NG/KG, PER MIN
     Route: 041
     Dates: start: 20121121, end: 20130126

REACTIONS (16)
  - Septic shock [Fatal]
  - Sepsis [Fatal]
  - Thrombotic thrombocytopenic purpura [Unknown]
  - Pyrexia [Unknown]
  - Microangiopathic haemolytic anaemia [Unknown]
  - Convulsion [Unknown]
  - Staphylococcal bacteraemia [Unknown]
  - Blood culture positive [Unknown]
  - Device related infection [Unknown]
  - Staphylococcal infection [Unknown]
  - Fluid retention [Unknown]
  - Oedema [Unknown]
  - Catheter site haemorrhage [Unknown]
  - Pain [Unknown]
  - Cardiac failure [Unknown]
  - Syncope [Not Recovered/Not Resolved]
